FAERS Safety Report 9868334 (Version 1)
Quarter: 2014Q1

REPORT INFORMATION
  Report Type: Spontaneous
  Country: US (occurrence: US)
  Receive Date: 20140204
  Receipt Date: 20140204
  Transmission Date: 20141002
  Serious: Yes (Other)
  Sender: FDA-Public Use
  Company Number: ALCN2014US000908

PATIENT
  Age: 75 Year
  Sex: Male

DRUGS (6)
  1. SIMBRINZA [Suspect]
     Indication: GLAUCOMA
     Dosage: 1 GTT, BID
     Route: 047
     Dates: start: 20130912, end: 20131027
  2. TRAVATANZ [Suspect]
     Indication: GLAUCOMA
     Dosage: 1 GTT, QD
  3. BYSTOLIC [Concomitant]
     Indication: BLOOD PRESSURE
     Dosage: 1 DF, QD
     Route: 048
  4. BENICAR [Concomitant]
     Indication: BLOOD PRESSURE
     Dosage: 1 DF, QD
     Route: 048
  5. PLAVIX [Concomitant]
     Dosage: 1 DF, QD
     Route: 048
  6. LIPITOR [Concomitant]
     Indication: BLOOD CHOLESTEROL
     Dosage: 1 DF, QD
     Route: 048

REACTIONS (5)
  - Loss of consciousness [Recovered/Resolved]
  - Fall [Recovered/Resolved]
  - Blood pressure orthostatic decreased [Recovered/Resolved]
  - Dry mouth [Recovered/Resolved]
  - Dysgeusia [Recovered/Resolved]
